FAERS Safety Report 7781356-9 (Version None)
Quarter: 2011Q3

REPORT INFORMATION
  Report Type: 
  Country: None (occurrence: None)
  Receive Date: 20110927
  Receipt Date: 20110912
  Transmission Date: 20111222
  Serious: Yes (Death, Other)
  Sender: FDA-Public Use
  Company Number: TW-WATSON-2011-15367

PATIENT
  Age: 41 Year
  Sex: Female

DRUGS (5)
  1. EPIRUBICIN [Suspect]
     Indication: T-CELL LYMPHOMA
  2. CYTARABINE [Suspect]
     Indication: T-CELL LYMPHOMA
  3. VINCRISTINE [Suspect]
     Indication: T-CELL LYMPHOMA
  4. CYCLOPHOSPHAMIDE [Suspect]
     Indication: T-CELL LYMPHOMA
  5. PREDNISOLONE [Suspect]
     Indication: T-CELL LYMPHOMA
     Dosage: UNK

REACTIONS (1)
  - LEUKAEMIA CUTIS [None]
